FAERS Safety Report 24172202 (Version 3)
Quarter: 2024Q3

REPORT INFORMATION
  Report Type: Report from Study
  Country: CA (occurrence: CA)
  Receive Date: 20240805
  Receipt Date: 20240909
  Transmission Date: 20241017
  Serious: Yes (Other)
  Sender: JOHNSON AND JOHNSON
  Company Number: CA-JNJFOC-20220949799

PATIENT
  Age: 44 Year
  Sex: Female
  Weight: 109 kg

DRUGS (2)
  1. REMICADE [Suspect]
     Active Substance: INFLIXIMAB
     Indication: Crohn^s disease
     Dosage: EXPIRATION DATE 30-AUG-2025. BATCH NO: 23A041.A, EXPIRY: -FEB-2026
     Route: 041
  2. REMICADE [Suspect]
     Active Substance: INFLIXIMAB
     Dosage: EXPIRATION DATE 30-AUG-2025. BATCH NO: 23A041.A, EXPIRY: -FEB-2026?EXPIRY DATE: 01/27
     Route: 041

REACTIONS (5)
  - Cystitis [Not Recovered/Not Resolved]
  - Vitamin D decreased [Not Recovered/Not Resolved]
  - Urinary tract infection [Recovered/Resolved]
  - Hypertension [Unknown]
  - Inflammation [Unknown]

NARRATIVE: CASE EVENT DATE: 20220901
